FAERS Safety Report 10681365 (Version 1)
Quarter: 2014Q4

REPORT INFORMATION
  Report Type: Spontaneous
  Country: US (occurrence: US)
  Receive Date: 20141230
  Receipt Date: 20141230
  Transmission Date: 20150529
  Serious: Yes (Other)
  Sender: FDA-Public Use
  Company Number: US-ROCHE-1513530

PATIENT
  Sex: Female

DRUGS (2)
  1. AVASTIN [Suspect]
     Active Substance: BEVACIZUMAB
     Indication: MACULAR OEDEMA
     Dosage: RIGHT EYE, !ST INJECTION
     Route: 065
     Dates: start: 20110305
  2. AVASTIN [Suspect]
     Active Substance: BEVACIZUMAB
     Dosage: 2ND INJECTION
     Route: 065
     Dates: start: 20110408

REACTIONS (11)
  - Optic nerve injury [Unknown]
  - Blindness unilateral [Unknown]
  - Anxiety [Unknown]
  - Eye infection [Unknown]
  - Lacrimation increased [Unknown]
  - Vitreous floaters [Unknown]
  - Intraocular pressure increased [Unknown]
  - Eye pain [Unknown]
  - Eye irritation [Unknown]
  - Retinal oedema [Unknown]
  - Temporal arteritis [Unknown]
